FAERS Safety Report 12093416 (Version 4)
Quarter: 2016Q1

REPORT INFORMATION
  Report Type: Spontaneous
  Country: US (occurrence: US)
  Receive Date: 20160219
  Receipt Date: 20160229
  Transmission Date: 20160526
  Serious: Yes (Hospitalization, Other)
  Sender: FDA-Public Use
  Company Number: US-ACTAVIS-2016-03847

PATIENT
  Age: 52 Year
  Sex: Male

DRUGS (3)
  1. VALACYCLOVIR HYDROCHLORIDE (WATSON LABORATORIES) [Suspect]
     Active Substance: VALACYCLOVIR HYDROCHLORIDE
     Indication: HERPES ZOSTER
     Dosage: 2 G, TOTAL
     Route: 048
  2. LABETALOL [Concomitant]
     Active Substance: LABETALOL\LABETALOL HYDROCHLORIDE
     Indication: BLOOD PRESSURE MEASUREMENT
     Dosage: UNK
     Route: 042
  3. ACYCLOVIR (AMALLC) [Suspect]
     Active Substance: ACYCLOVIR
     Indication: ENCEPHALITIS
     Dosage: EVERY 12 HOURS( 9 DOSES OF ACYCLOVIR OVER 6 DAYS)
     Route: 042

REACTIONS (5)
  - Hallucination, auditory [Recovered/Resolved]
  - Neurotoxicity [Recovered/Resolved]
  - Status epilepticus [Recovered/Resolved]
  - Restlessness [Recovered/Resolved]
  - Irritability [Recovered/Resolved]
